FAERS Safety Report 10357428 (Version 1)
Quarter: 2014Q3

REPORT INFORMATION
  Report Type: Spontaneous
  Country: US (occurrence: None)
  Receive Date: 20140730
  Receipt Date: 20140730
  Transmission Date: 20150326
  Serious: Yes (Other)
  Sender: FDA-Public Use
  Company Number: 2010S1002632

PATIENT
  Age: 61 Year
  Sex: Male

DRUGS (7)
  1. ZOCOR [Concomitant]
     Active Substance: SIMVASTATIN
  2. PHOSPHO-SODA [Suspect]
     Active Substance: SODIUM PHOSPHATE, DIBASIC\SODIUM PHOSPHATE, MONOBASIC
     Indication: COLONOSCOPY
     Route: 048
     Dates: start: 20070221, end: 20070221
  3. PLAVIX [Concomitant]
     Active Substance: CLOPIDOGREL BISULFATE
  4. LISINOPRIL. [Concomitant]
     Active Substance: LISINOPRIL
  5. BUMEX [Concomitant]
     Active Substance: BUMETANIDE
  6. METFORMIN [Concomitant]
     Active Substance: METFORMIN HYDROCHLORIDE
  7. VERAPAMIL [Concomitant]
     Active Substance: VERAPAMIL HYDROCHLORIDE

REACTIONS (15)
  - Renal disorder [None]
  - Asthenia [None]
  - Tremor [None]
  - Fluid overload [None]
  - Anaemia [None]
  - Dialysis [None]
  - Dizziness [None]
  - Renal failure chronic [None]
  - Renal failure acute [None]
  - Hypertension [None]
  - Blood parathyroid hormone increased [None]
  - Fluid retention [None]
  - Hyperparathyroidism [None]
  - Renal cyst [None]
  - Constipation [None]

NARRATIVE: CASE EVENT DATE: 200812
